FAERS Safety Report 15430871 (Version 1)
Quarter: 2018Q3

REPORT INFORMATION
  Report Type: Spontaneous
  Country: FR (occurrence: FR)
  Receive Date: 20180926
  Receipt Date: 20180926
  Transmission Date: 20181010
  Serious: Yes (Other)
  Sender: FDA-Public Use
  Company Number: FR-ANIPHARMA-2018-FR-000143

PATIENT
  Age: 75 Year
  Sex: Female

DRUGS (1)
  1. ATACAND [Suspect]
     Active Substance: CANDESARTAN CILEXETIL
     Dosage: 1 DF DAILY
     Route: 048

REACTIONS (1)
  - Intraocular pressure increased [Unknown]

NARRATIVE: CASE EVENT DATE: 201809
